FAERS Safety Report 4932429-7 (Version None)
Quarter: 2006Q1

REPORT INFORMATION
  Report Type: 
  Country: None (occurrence: None)
  Receive Date: 20060301
  Receipt Date: 20060216
  Transmission Date: 20060701
  Serious: Yes (Other)
  Sender: FDA-Public Use
  Company Number: 2006011093

PATIENT
  Age: 60 Year
  Sex: Female

DRUGS (2)
  1. AROMASIN [Suspect]
     Indication: BREAST CANCER
     Dosage: 25 MG (25 MG, DAILY), ORAL
     Route: 048
     Dates: start: 20040916, end: 20051201
  2. TAMOXIFEN CITRATE [Concomitant]

REACTIONS (3)
  - CARDIAC DISORDER [None]
  - DEPRESSION [None]
  - PARKINSONISM [None]
